FAERS Safety Report 6422020-8 (Version None)
Quarter: 2009Q4

REPORT INFORMATION
  Report Type: 
  Country: None (occurrence: None)
  Receive Date: 20091030
  Receipt Date: 20080626
  Transmission Date: 20100525
  Serious: Yes (Hospitalization, Disabling)
  Sender: FDA-Public Use
  Company Number: BR-ALLERGAN-0803404US

PATIENT
  Age: 59 Year
  Sex: Male

DRUGS (11)
  1. DEXAMETHASONE SODIUM POSPHATE [Suspect]
     Indication: DIABETIC RETINAL OEDEMA
     Dosage: 0.7 MG, SINGLE
     Route: 031
     Dates: start: 20070619, end: 20070619
  2. DEXAMETHASONE SODIUM POSPHATE [Suspect]
     Dosage: UNK, SINGLE
     Route: 031
     Dates: start: 20071210, end: 20071210
  3. GLUCOFORMIN [Concomitant]
     Indication: HYPERGLYCAEMIA
  4. DIAMOX SRC [Concomitant]
     Indication: GLAUCOMA
  5. COMBIGAN [Concomitant]
     Indication: GLAUCOMA
  6. METICORTEN [Concomitant]
     Indication: INFLAMMATION
  7. ATROPINA [Concomitant]
     Indication: MYDRIASIS
  8. CICLOMIDRIN [Concomitant]
     Indication: MYDRIASIS
  9. ZYMAR [Concomitant]
     Indication: INFECTION
  10. TRISORB [Concomitant]
  11. PRED FORTE [Concomitant]
     Indication: INFLAMMATION

REACTIONS (1)
  - NECROTISING RETINITIS [None]
